FAERS Safety Report 16404011 (Version 7)
Quarter: 2020Q2

REPORT INFORMATION
  Report Type: Report from Study
  Country: BR (occurrence: BR)
  Receive Date: 20190607
  Receipt Date: 20200626
  Transmission Date: 20200713
  Serious: Yes (Life-Threatening, Hospitalization, Other)
  Sender: FDA-Public Use
  Company Number: PHHY2019BR128680

PATIENT
  Age: 43 Year
  Sex: Female
  Weight: 65 kg

DRUGS (4)
  1. COSENTYX [Suspect]
     Active Substance: SECUKINUMAB
     Indication: PSORIASIS
     Dosage: UNK UNK, QMO (PEN)
     Route: 065
     Dates: start: 20181128
  2. COSENTYX [Suspect]
     Active Substance: SECUKINUMAB
     Indication: PSORIATIC ARTHROPATHY
     Dosage: UNK
     Route: 065
     Dates: start: 201812
  3. COSENTYX [Suspect]
     Active Substance: SECUKINUMAB
     Dosage: UNK UNK, QMO
     Route: 065
     Dates: start: 20190526
  4. COSENTYX [Suspect]
     Active Substance: SECUKINUMAB
     Dosage: 300 MG, QMO
     Route: 065
     Dates: start: 20200526

REACTIONS (15)
  - Arthralgia [Not Recovered/Not Resolved]
  - Mobility decreased [Recovering/Resolving]
  - Gastrointestinal motility disorder [Recovered/Resolved]
  - Gastrointestinal infection [Recovered/Resolved]
  - Malaise [Recovered/Resolved]
  - Intracranial aneurysm [Recovering/Resolving]
  - Confusional state [Recovering/Resolving]
  - Hypertension [Not Recovered/Not Resolved]
  - Gastrointestinal necrosis [Recovered/Resolved]
  - Feeling abnormal [Unknown]
  - Limb discomfort [Recovered/Resolved with Sequelae]
  - Vascular rupture [Not Recovered/Not Resolved]
  - Syncope [Recovering/Resolving]
  - Limb discomfort [Unknown]
  - Cerebrovascular accident [Recovering/Resolving]

NARRATIVE: CASE EVENT DATE: 201903
